FAERS Safety Report 16847447 (Version 1)
Quarter: 2019Q3

REPORT INFORMATION
  Report Type: Spontaneous
  Country: US (occurrence: US)
  Receive Date: 20190924
  Receipt Date: 20190924
  Transmission Date: 20191005
  Serious: Yes (Hospitalization, Other)
  Sender: FDA-Public Use
  Company Number: US-B.I. PHARMACEUTICALS,INC./RIDGEFIELD-2019-BI-103186

PATIENT
  Age: 28 Year
  Sex: Female

DRUGS (6)
  1. CATAPRES [Suspect]
     Active Substance: CLONIDINE HYDROCHLORIDE
     Indication: ANXIETY
     Route: 065
  2. CATAPRES [Suspect]
     Active Substance: CLONIDINE HYDROCHLORIDE
     Indication: DEPRESSION
  3. METHADONE [Suspect]
     Active Substance: METHADONE HYDROCHLORIDE
     Route: 065
  4. GABAPENTIN. [Concomitant]
     Active Substance: GABAPENTIN
     Indication: ANXIETY
     Route: 065
  5. GABAPENTIN. [Concomitant]
     Active Substance: GABAPENTIN
     Indication: DEPRESSION
  6. METHADONE [Suspect]
     Active Substance: METHADONE HYDROCHLORIDE
     Indication: DRUG USE DISORDER
     Dosage: 120 MG AT 37 WEEKS
     Route: 065

REACTIONS (11)
  - Pneumonia [Unknown]
  - Overdose [Unknown]
  - Urinary tract infection [Unknown]
  - Sepsis [Unknown]
  - Abdominal injury [Unknown]
  - Maternal exposure during pregnancy [Unknown]
  - Pyelonephritis [Unknown]
  - Fall [Unknown]
  - Physical assault [Unknown]
  - Humerus fracture [Unknown]
  - Sedation complication [Unknown]
